FAERS Safety Report 7041667-1 (Version None)
Quarter: 2010Q4

REPORT INFORMATION
  Report Type: 
  Country: None (occurrence: None)
  Receive Date: 20101013
  Receipt Date: 20100929
  Transmission Date: 20110411
  Serious: Yes (Other)
  Sender: FDA-Public Use
  Company Number: JP-ROCHE-731245

PATIENT
  Age: 60 Year
  Sex: Female

DRUGS (5)
  1. AVASTIN [Suspect]
     Indication: PSEUDOMYXOMA PERITONEI
     Dosage: NOTE: DOSAGE IS UNCERTAIN
     Route: 041
  2. ELPLAT [Concomitant]
     Dosage: NOTE: DOSAGE IS UNCERTAIN
     Route: 041
  3. FLUOROURACIL [Concomitant]
     Dosage: NOTE: DOSAGE IS UNCERTAIN.
     Route: 040
  4. FLUOROURACIL [Concomitant]
     Dosage: NOTE: DOSAGE IS UNCERTAIN
     Route: 041
  5. LEUCOVORIN CALCIUM [Concomitant]
     Dosage: NOTE: DOSAGE IS UNCERTAIN
     Route: 041

REACTIONS (2)
  - ASCITES [None]
  - PERITONITIS [None]
